FAERS Safety Report 23800511 (Version 1)
Quarter: 2024Q2

REPORT INFORMATION
  Report Type: Spontaneous
  Country: US (occurrence: None)
  Receive Date: 20240429
  Receipt Date: 20240429
  Transmission Date: 20240716
  Serious: Yes (Other)
  Sender: FDA-Public Use
  Company Number: None

PATIENT
  Age: 33 Year
  Sex: Female

DRUGS (1)
  1. SAPROPTERIN [Suspect]
     Active Substance: SAPROPTERIN
     Indication: Phenylketonuria
     Dosage: FREQ: TAKE ONE 100 MG PACKET AND THREE 500 MG PACKET FOR A TOTAL QF 1,600 MG BY MOUTH DAILY:  DISSOL
     Route: 048
     Dates: start: 20240202

REACTIONS (2)
  - Abortion spontaneous [None]
  - Maternal exposure during pregnancy [None]

NARRATIVE: CASE EVENT DATE: 20240403
